FAERS Safety Report 9430873 (Version 1)
Quarter: 2013Q3

REPORT INFORMATION
  Report Type: Report from Study
  Country: US (occurrence: US)
  Receive Date: 20130730
  Receipt Date: 20130730
  Transmission Date: 20140515
  Serious: No
  Sender: FDA-Public Use
  Company Number: US-ABBOTT-13P-163-1110207-00

PATIENT
  Age: 77 Year
  Sex: Male

DRUGS (7)
  1. NIASPAN (COATED) [Suspect]
     Indication: HIGH DENSITY LIPOPROTEIN DECREASED
     Dosage: TAKES AT AROUND 5PM TO 5PM IN THE EVENING
  2. NIASPAN (COATED) [Suspect]
     Dosage: AT 6PM
  3. COUMADIN [Concomitant]
     Indication: PRODUCT USED FOR UNKNOWN INDICATION
  4. QUINAPRIL [Concomitant]
     Indication: PRODUCT USED FOR UNKNOWN INDICATION
  5. DIGOXIN [Concomitant]
     Indication: PRODUCT USED FOR UNKNOWN INDICATION
  6. ASPIRIN [Concomitant]
     Indication: PROPHYLAXIS
     Dosage: ABOUT AN HOUR AFTER TAKING NIASPAN
  7. ASPIRIN [Concomitant]
     Indication: FLUSHING

REACTIONS (3)
  - Flushing [Recovered/Resolved]
  - Flushing [Recovered/Resolved]
  - Skin burning sensation [Recovered/Resolved]
